FAERS Safety Report 7913925-7 (Version None)
Quarter: 2011Q4

REPORT INFORMATION
  Report Type: 
  Country: None (occurrence: None)
  Receive Date: 20111115
  Receipt Date: 20111109
  Transmission Date: 20120403
  Serious: Yes (Congenital Anomaly, Other)
  Sender: FDA-Public Use
  Company Number: US-PFIZER INC-2011274689

PATIENT
  Sex: Male

DRUGS (1)
  1. ZOLOFT [Suspect]
     Dosage: UNK
     Route: 064

REACTIONS (12)
  - HYPOPLASTIC LEFT HEART SYNDROME [None]
  - RIGHT ATRIAL DILATATION [None]
  - ATRIAL SEPTAL DEFECT [None]
  - FOETAL EXPOSURE DURING PREGNANCY [None]
  - INTRACARDIAC THROMBUS [None]
  - AORTIC VALVE INCOMPETENCE [None]
  - RIGHT VENTRICULAR HYPERTROPHY [None]
  - AMBLYOPIA [None]
  - ASPERGER'S DISORDER [None]
  - GAIT DISTURBANCE [None]
  - TRICUSPID VALVE INCOMPETENCE [None]
  - PECTUS CARINATUM [None]
